FAERS Safety Report 11370026 (Version 2)
Quarter: 2015Q3

REPORT INFORMATION
  Report Type: Spontaneous
  Country: US (occurrence: US)
  Receive Date: 20150812
  Receipt Date: 20150904
  Transmission Date: 20151125
  Serious: No
  Sender: FDA-Public Use
  Company Number: US-JNJFOC-20150716851

PATIENT
  Sex: Female
  Weight: 132 kg

DRUGS (19)
  1. INVOKANA [Suspect]
     Active Substance: CANAGLIFLOZIN
     Indication: TYPE 2 DIABETES MELLITUS
     Route: 048
  2. GABAPENTIN. [Concomitant]
     Active Substance: GABAPENTIN
     Indication: PROPHYLAXIS
     Dosage: 90 TAB, 5 REFILLS
     Route: 048
  3. REQUIP [Concomitant]
     Active Substance: ROPINIROLE HYDROCHLORIDE
     Indication: PROPHYLAXIS
     Dosage: 1 TABLET QHS; 30 TAB, 11 REFILLS
     Route: 048
  4. METOPROLOL [Concomitant]
     Active Substance: METOPROLOL
     Indication: PROPHYLAXIS
     Dosage: 30 TABS, 11 REFILLS
     Route: 048
  5. SYMBICORT [Concomitant]
     Active Substance: BUDESONIDE\FORMOTEROL FUMARATE DIHYDRATE
     Indication: PROPHYLAXIS
     Dosage: 160/ 4.5 INHALATION AEROSOL WITH ADAPTER
     Route: 055
  6. LOSARTAN. [Concomitant]
     Active Substance: LOSARTAN
     Indication: PROPHYLAXIS
     Dosage: 60 TABS, 11 REFILLS
     Route: 048
  7. NICOTINE. [Concomitant]
     Active Substance: NICOTINE
     Dosage: 21MG/ 24 HOUR EXTENDED RELEASE TRANSDERMAL FILM X 6 WEEKS
     Route: 061
  8. RANITIDINE [Concomitant]
     Active Substance: RANITIDINE\RANITIDINE HYDROCHLORIDE
     Indication: PROPHYLAXIS
     Dosage: 60 TAB, 2 REFILLS
     Route: 048
  9. HYDROCODONE BITARTRATE AND ACETAMINOPHEN [Concomitant]
     Active Substance: ACETAMINOPHEN\HYDROCODONE BITARTRATE
     Indication: PAIN
     Dosage: 325MG- 5 MG; 1 OR 2 TABLETS
     Route: 048
  10. ALBUTEROL IPRATROPIUM [Concomitant]
     Dosage: 5 REFILLS 360 ML
     Route: 055
  11. NICOTINE. [Concomitant]
     Active Substance: NICOTINE
     Dosage: 21MG/ 24 HOUR EXTENDED RELEASE TRANSDERMAL FILM X 2 WEEKS
     Route: 061
  12. GLIPIZIDE. [Concomitant]
     Active Substance: GLIPIZIDE
     Indication: PROPHYLAXIS
     Dosage: 60 TAB, 11 REFILLS
     Route: 048
  13. METFORMIN [Concomitant]
     Active Substance: METFORMIN HYDROCHLORIDE
     Indication: PROPHYLAXIS
     Dosage: START BY 500 MG ONCE DAILY FOR FIRST FOUR DAYS, THEN 500 MG TWICE DAILY??60 TABS, 2 REFILLS
     Route: 048
  14. NICOTINE. [Concomitant]
     Active Substance: NICOTINE
     Dosage: 21MG/ 24 HOUR EXTENDED RELEASE TRANSDERMAL FILM X 2 WEEKS
     Route: 061
  15. MELOXICAM. [Concomitant]
     Active Substance: MELOXICAM
     Indication: PROPHYLAXIS
     Dosage: 30 TABS, 2 REFILLS
     Route: 048
  16. ALBUTEROL. [Concomitant]
     Active Substance: ALBUTEROL
     Dosage: 0.63 MG/ 3 ML (0.021%)
     Route: 055
  17. PROAIR HFA [Concomitant]
     Active Substance: ALBUTEROL SULFATE
     Indication: WHEEZING
     Dosage: 90 MCG/ INH
     Route: 055
  18. SIMVASTATIN. [Concomitant]
     Active Substance: SIMVASTATIN
     Indication: PROPHYLAXIS
     Dosage: 1 TABLET QHS; 30 TAB, 11 REFILLS
     Route: 048
  19. VESICARE [Concomitant]
     Active Substance: SOLIFENACIN SUCCINATE
     Indication: PROPHYLAXIS
     Dosage: TO REPLACE OXYBUTYNIN; 30 TAB, 11 REFILLS
     Route: 048

REACTIONS (3)
  - Vulvovaginal discomfort [Recovered/Resolved]
  - Abdominal pain [Recovered/Resolved]
  - Diarrhoea [Recovered/Resolved]
